FAERS Safety Report 7302488-5 (Version None)
Quarter: 2011Q1

REPORT INFORMATION
  Report Type: 
  Country: None (occurrence: None)
  Receive Date: 20110218
  Receipt Date: 20110215
  Transmission Date: 20110831
  Serious: No
  Sender: FDA-Public Use
  Company Number: US-PFIZER INC-2010129401

PATIENT
  Sex: Male

DRUGS (2)
  1. CAVERJECT [Suspect]
     Indication: ERECTILE DYSFUNCTION
     Dosage: 20 MG, TWICE
  2. CAVERJECT [Suspect]
     Dosage: 40 UG, UNK

REACTIONS (1)
  - DRUG INEFFECTIVE [None]
